FAERS Safety Report 9210696 (Version 1)
Quarter: 2013Q2

REPORT INFORMATION
  Report Type: Spontaneous
  Country: US (occurrence: US)
  Receive Date: 20130404
  Receipt Date: 20130404
  Transmission Date: 20140414
  Serious: Yes (Hospitalization)
  Sender: FDA-Public Use
  Company Number: US-VIIV HEALTHCARE LIMITED-A1017694A

PATIENT
  Sex: Male

DRUGS (4)
  1. EPIVIR [Suspect]
     Indication: HIV INFECTION
     Dosage: 100MG PER DAY
     Route: 048
  2. INVIRASE [Suspect]
     Indication: HIV INFECTION
     Dosage: 600MG PER DAY
     Route: 065
  3. ISENTRESS [Suspect]
     Indication: HIV INFECTION
     Dosage: 400MG TWICE PER DAY
     Route: 065
  4. NO CONCURRENT MEDICATION [Concomitant]

REACTIONS (4)
  - Renal failure [Not Recovered/Not Resolved]
  - Pneumonia [Unknown]
  - Dehydration [Unknown]
  - Blood creatinine increased [Unknown]
